FAERS Safety Report 20937723 (Version 1)
Quarter: 2022Q2

REPORT INFORMATION
  Report Type: Spontaneous
  Country: US (occurrence: None)
  Receive Date: 20220608
  Receipt Date: 20220608
  Transmission Date: 20220720
  Serious: Yes (Life-Threatening, Hospitalization, Disabling)
  Sender: FDA-Public Use
  Company Number: None

PATIENT
  Age: 19 Year
  Sex: Female
  Weight: 51.75 kg

DRUGS (2)
  1. LAMICTAL [Suspect]
     Active Substance: LAMOTRIGINE
     Indication: Bipolar II disorder
     Dosage: OTHER QUANTITY : 1 TABLET(S);?FREQUENCY : DAILY;?
     Route: 048
     Dates: start: 20191112, end: 20191209
  2. LAMICTAL [Suspect]
     Active Substance: LAMOTRIGINE
     Indication: Depression

REACTIONS (24)
  - Urticaria [None]
  - Erythema [None]
  - Swelling face [None]
  - Eye swelling [None]
  - Pruritus [None]
  - Therapy cessation [None]
  - Drug withdrawal syndrome [None]
  - Photophobia [None]
  - Loss of consciousness [None]
  - Back pain [None]
  - Skin exfoliation [None]
  - Blister [None]
  - Throat tightness [None]
  - Anaphylactic reaction [None]
  - Stevens-Johnson syndrome [None]
  - Asthma [None]
  - Chemical burn [None]
  - Eczema [None]
  - Trichorrhexis [None]
  - Alopecia [None]
  - Nerve injury [None]
  - Panic reaction [None]
  - Autoimmune thyroiditis [None]
  - Sinus tachycardia [None]

NARRATIVE: CASE EVENT DATE: 20191211
